FAERS Safety Report 24647642 (Version 1)
Quarter: 2024Q4

REPORT INFORMATION
  Report Type: Spontaneous
  Country: CN (occurrence: CN)
  Receive Date: 20241121
  Receipt Date: 20241121
  Transmission Date: 20250114
  Serious: Yes (Other)
  Sender: BAYER HEALTHCARE PHARMACEUTICALS INC.
  Company Number: CN-BAYER-2024A165901

PATIENT
  Age: 33 Year
  Sex: Female
  Weight: 47.6 kg

DRUGS (1)
  1. ULTRAVIST [Suspect]
     Active Substance: IOPROMIDE
     Indication: Angiocardiogram
     Dosage: 70 ML, ONCE
     Route: 042
     Dates: start: 20241118, end: 20241118

REACTIONS (4)
  - Amaurosis fugax [Recovering/Resolving]
  - Palpitations [Recovering/Resolving]
  - Eyelid irritation [Recovering/Resolving]
  - Acne [Recovering/Resolving]

NARRATIVE: CASE EVENT DATE: 20241118
